FAERS Safety Report 16956915 (Version 1)
Quarter: 2019Q4

REPORT INFORMATION
  Report Type: Spontaneous
  Country: US (occurrence: US)
  Receive Date: 20190905
  Receipt Date: 20190905
  Transmission Date: 20200122
  Serious: Yes (Other)
  Sender: FDA-Public Use
  Company Number: None

PATIENT
  Age: 53 Year
  Sex: Male
  Weight: 102.51 kg

DRUGS (8)
  1. ATORVASTATIN [Concomitant]
     Active Substance: ATORVASTATIN
  2. HYDRALAZINE [Concomitant]
     Active Substance: HYDRALAZINE HYDROCHLORIDE
  3. ZYPREXA [Suspect]
     Active Substance: OLANZAPINE
     Indication: SCHIZOPHRENIA
     Dosage: ?          QUANTITY:30 DF DOSAGE FORM;?
     Route: 048
     Dates: start: 20000109
  4. SODIUM BICAR [Concomitant]
  5. NIFEDIPINE. [Concomitant]
     Active Substance: NIFEDIPINE
  6. ZYPREXA [Concomitant]
     Active Substance: OLANZAPINE
  7. CARVEDILOL. [Concomitant]
     Active Substance: CARVEDILOL
  8. ALLOPURINOL. [Concomitant]
     Active Substance: ALLOPURINOL

REACTIONS (2)
  - Insomnia [None]
  - Erectile dysfunction [None]

NARRATIVE: CASE EVENT DATE: 20130510
